FAERS Safety Report 4312078-4 (Version None)
Quarter: 2004Q1

REPORT INFORMATION
  Report Type: 
  Country: None (occurrence: None)
  Receive Date: 20040304
  Receipt Date: 20040304
  Transmission Date: 20041129
  Serious: Yes (Other)
  Sender: FDA-Public Use
  Company Number: None

PATIENT
  Age: 53 Year
  Sex: Female
  Weight: 63.5036 kg

DRUGS (3)
  1. CELEBREX [Suspect]
     Indication: ARTHRITIS
     Dosage: 1 DAY ORAL
     Route: 048
  2. CELEBREX [Suspect]
     Indication: BACK PAIN
     Dosage: 1 DAY ORAL
     Route: 048
  3. NITROGLYCERIN [Concomitant]

REACTIONS (1)
  - ANGINA PECTORIS [None]
